FAERS Safety Report 9601596 (Version 2)
Quarter: 2013Q4

REPORT INFORMATION
  Report Type: Spontaneous
  Country: GB (occurrence: None)
  Receive Date: 20131002
  Receipt Date: 20131008
  Transmission Date: 20140711
  Serious: Yes (Hospitalization, Other)
  Sender: FDA-Public Use
  Company Number: AUR-APL-2013-07956

PATIENT
  Sex: Male

DRUGS (1)
  1. RAMIPRIL [Suspect]
     Indication: PRODUCT USED FOR UNKNOWN INDICATION

REACTIONS (3)
  - Renal failure [None]
  - Bacterial infection [None]
  - Stress [None]
